FAERS Safety Report 7658128-9 (Version None)
Quarter: 2011Q3

REPORT INFORMATION
  Report Type: 
  Country: None (occurrence: None)
  Receive Date: 20110805
  Receipt Date: 20110801
  Transmission Date: 20111222
  Serious: Yes (Other)
  Sender: FDA-Public Use
  Company Number: US-BAYER-2011-049635

PATIENT
  Sex: Female

DRUGS (1)
  1. MIRENA [Suspect]
     Indication: CONTRACEPTION
     Dosage: UNK
     Dates: start: 20090901, end: 20110523

REACTIONS (8)
  - VULVOVAGINAL DISCOMFORT [None]
  - VULVOVAGINAL DRYNESS [None]
  - DYSPAREUNIA [None]
  - VAGINITIS BACTERIAL [None]
  - VAGINAL INFLAMMATION [None]
  - VAGINAL LACERATION [None]
  - VULVOVAGINAL MYCOTIC INFECTION [None]
  - URINARY TRACT INFECTION [None]
